FAERS Safety Report 20222468 (Version 2)
Quarter: 2022Q1

REPORT INFORMATION
  Report Type: Spontaneous
  Country: JP (occurrence: JP)
  Receive Date: 20211223
  Receipt Date: 20220106
  Transmission Date: 20220423
  Serious: Yes (Life-Threatening)
  Sender: FDA-Public Use
  Company Number: JP-MSD-2111JPN000989J

PATIENT
  Age: 6 Month
  Sex: Male
  Weight: 7 kg

DRUGS (3)
  1. BRIDION [Suspect]
     Active Substance: SUGAMMADEX
     Indication: Neuromuscular blockade reversal
     Dosage: UNK
     Route: 042
  2. ROCURONIUM BROMIDE [Concomitant]
     Active Substance: ROCURONIUM BROMIDE
     Indication: General anaesthesia
     Dosage: UNK
     Route: 040
  3. PROPOFOL [Concomitant]
     Active Substance: PROPOFOL
     Indication: General anaesthesia
     Dosage: UNK
     Route: 040

REACTIONS (2)
  - Oxygen saturation decreased [Recovered/Resolved]
  - Product administered to patient of inappropriate age [Unknown]
